FAERS Safety Report 8940274 (Version 1)
Quarter: 2012Q4

REPORT INFORMATION
  Report Type: Report from Study
  Country: AU (occurrence: AU)
  Receive Date: 20121130
  Receipt Date: 20121130
  Transmission Date: 20130627
  Serious: Yes (Hospitalization)
  Sender: FDA-Public Use
  Company Number: AU-BAXTER-2012BAX025183

PATIENT
  Age: 65 Year
  Sex: Female
  Weight: 85.7 kg

DRUGS (15)
  1. ENDOXAN [Suspect]
     Indication: BREAST CANCER
     Route: 042
     Dates: start: 20090610
  2. ENDOXAN [Suspect]
     Route: 042
     Dates: start: 20090706
  3. BEVACIZUMAB [Suspect]
     Indication: BREAST CANCER
     Route: 065
     Dates: start: 20090610
  4. FLUOROURACIL [Suspect]
     Indication: BREAST CANCER
     Route: 042
     Dates: start: 20090610
  5. FLUOROURACIL [Suspect]
     Route: 042
  6. EPIRUBICIN [Suspect]
     Indication: BREAST CANCER
     Route: 042
     Dates: start: 20090610
  7. EPIRUBICIN [Suspect]
     Route: 042
     Dates: start: 20090706
  8. DOCETAXEL [Suspect]
     Indication: BREAST CANCER
     Route: 042
     Dates: start: 20090610
  9. DOCETAXEL [Suspect]
     Route: 042
     Dates: start: 20090928
  10. CLONAZEPAM [Concomitant]
     Indication: DRUG USE FOR UNKNOWN INDICATION
     Route: 065
     Dates: start: 1970
  11. OLANZAPINE [Concomitant]
     Indication: DRUG USE FOR UNKNOWN INDICATION
     Route: 065
  12. PANTOPRAZOLE [Concomitant]
     Indication: DRUG USE FOR UNKNOWN INDICATION
     Route: 065
     Dates: start: 20090826, end: 20090827
  13. AMITRIPTYLINE [Concomitant]
     Indication: DRUG USE FOR UNKNOWN INDICATION
     Route: 065
     Dates: start: 1970
  14. PEGFILGRASTIM [Concomitant]
     Indication: DRUG USE FOR UNKNOWN INDICATION
     Route: 065
     Dates: start: 20090707
  15. NYSTATIN [Concomitant]
     Indication: DRUG USE FOR UNKNOWN INDICATION
     Route: 065

REACTIONS (19)
  - Neutropenia [Recovered/Resolved]
  - Urinary tract infection [Recovered/Resolved]
  - Nausea [None]
  - Oropharyngeal pain [None]
  - Dizziness [None]
  - Pyrexia [None]
  - Infusion site vesicles [None]
  - Haemoglobin decreased [None]
  - Vomiting [None]
  - Cough [None]
  - Myalgia [None]
  - Decreased appetite [None]
  - Drug resistance [None]
  - Pain [None]
  - Blood pressure diastolic decreased [None]
  - Heart rate increased [None]
  - Constipation [None]
  - Pneumonia [None]
  - Klebsiella test positive [None]
